FAERS Safety Report 5098186-1 (Version None)
Quarter: 2006Q3

REPORT INFORMATION
  Report Type: 
  Country: None (occurrence: None)
  Receive Date: 20060906
  Receipt Date: 20060522
  Transmission Date: 20061208
  Serious: No
  Sender: FDA-Public Use
  Company Number: US-GLAXOSMITHKLINE-A0606509A

PATIENT
  Age: 73 Year
  Sex: Female

DRUGS (9)
  1. REQUIP [Suspect]
     Indication: RESTLESS LEGS SYNDROME
     Dosage: 1.25MG PER DAY
     Route: 048
  2. BENICAR [Concomitant]
  3. VERAPAMIL [Concomitant]
  4. DYAZIDE [Concomitant]
  5. SYNTHROID [Concomitant]
  6. TOPROL-XL [Concomitant]
  7. DARVOCET [Concomitant]
  8. LEXAPRO [Concomitant]
  9. VITAMIN B-12 [Concomitant]

REACTIONS (4)
  - DIZZINESS [None]
  - ECZEMA [None]
  - NAUSEA [None]
  - RASH [None]
